FAERS Safety Report 10204053 (Version 1)
Quarter: 2014Q2

REPORT INFORMATION
  Report Type: Spontaneous
  Country: US (occurrence: US)
  Receive Date: 20140529
  Receipt Date: 20140529
  Transmission Date: 20141212
  Serious: No
  Sender: FDA-Public Use
  Company Number: US-009507513-1405USA013640

PATIENT
  Sex: Male

DRUGS (1)
  1. MIRALAX [Suspect]
     Indication: COLONOSCOPY
     Dosage: 255 G, UNKNOWN
     Route: 048

REACTIONS (3)
  - Overdose [Unknown]
  - Drug prescribing error [Unknown]
  - Drug ineffective [Unknown]
